FAERS Safety Report 16171182 (Version 2)
Quarter: 2019Q2

REPORT INFORMATION
  Report Type: Report from Study
  Country: US (occurrence: US)
  Receive Date: 20190408
  Receipt Date: 20190415
  Transmission Date: 20190711
  Serious: Yes (Death)
  Sender: FDA-Public Use
  Company Number: US-BAUSCH-BL-2019-010525

PATIENT
  Sex: Male
  Weight: 108.05 kg

DRUGS (1)
  1. XIFAXAN [Suspect]
     Active Substance: RIFAXIMIN
     Indication: HEPATIC CIRRHOSIS
     Route: 048
     Dates: start: 201704, end: 20190115

REACTIONS (3)
  - Pituitary tumour [Fatal]
  - Psoriasis [Fatal]
  - Hepatic cirrhosis [Fatal]
